FAERS Safety Report 9247305 (Version 2)
Quarter: 2013Q2

REPORT INFORMATION
  Report Type: Spontaneous
  Country: US (occurrence: US)
  Receive Date: 20130423
  Receipt Date: 20130531
  Transmission Date: 20140414
  Serious: Yes (Other)
  Sender: FDA-Public Use
  Company Number: US-JNJFOC-20130214870

PATIENT
  Sex: Male
  Weight: 72.12 kg

DRUGS (2)
  1. ZYTIGA [Suspect]
     Indication: PROSTATE CANCER
     Route: 048
     Dates: start: 201301, end: 201302
  2. PREDNISONE [Concomitant]
     Route: 065

REACTIONS (2)
  - Depression [Unknown]
  - Liver function test abnormal [Unknown]
